FAERS Safety Report 10169353 (Version 1)
Quarter: 2014Q2

REPORT INFORMATION
  Report Type: Spontaneous
  Country: FR (occurrence: FR)
  Receive Date: 20140513
  Receipt Date: 20140513
  Transmission Date: 20141212
  Serious: Yes (Hospitalization)
  Sender: FDA-Public Use
  Company Number: FR-JNJFOC-20140505259

PATIENT
  Age: 70 Year
  Sex: Male

DRUGS (10)
  1. XARELTO [Suspect]
     Indication: THROMBOSIS PROPHYLAXIS
     Route: 048
     Dates: start: 20140217, end: 20140420
  2. XARELTO [Suspect]
     Indication: ORTHOPAEDIC PROCEDURE
     Route: 048
     Dates: start: 20140217, end: 20140420
  3. AMLODIPINE [Concomitant]
     Route: 065
  4. COAPROVEL [Concomitant]
     Route: 065
  5. JANUMET [Concomitant]
     Route: 065
  6. LEVOTHYROX [Concomitant]
     Route: 065
  7. REPAGLINIDE [Concomitant]
     Route: 065
  8. TARDYFERON [Concomitant]
     Route: 065
  9. XATRAL [Concomitant]
     Route: 065
  10. IMOVANE [Concomitant]
     Route: 065

REACTIONS (1)
  - Anaemia [Recovered/Resolved]
